FAERS Safety Report 8779306 (Version 1)
Quarter: 2012Q4

REPORT INFORMATION
  Report Type: 
  Country: FR (occurrence: FR)
  Receive Date: 20120912
  Receipt Date: 20120912
  Transmission Date: 20130627
  Serious: Yes (Hospitalization)
  Sender: FDA-Public Use
  Company Number: FR-ROCHE-1119436

PATIENT
  Age: 68 Year
  Sex: Female

DRUGS (8)
  1. METALYSE [Suspect]
     Indication: MYOCARDIAL INFARCTION
     Route: 040
     Dates: start: 20110402, end: 20110402
  2. LOVENOX [Suspect]
     Indication: MYOCARDIAL INFARCTION
     Route: 058
     Dates: start: 20110402
  3. LOVENOX [Suspect]
     Route: 065
  4. PLAVIX [Suspect]
     Indication: CHEST PAIN
     Route: 065
  5. PLAVIX [Suspect]
     Route: 065
  6. KARDEGIC [Suspect]
     Indication: CHEST PAIN
     Route: 048
  7. DAFALGAN [Concomitant]
  8. TRINITRINE [Concomitant]

REACTIONS (4)
  - Extradural haematoma [Recovered/Resolved with Sequelae]
  - Hemiplegia [Recovered/Resolved with Sequelae]
  - Subarachnoid haemorrhage [Recovered/Resolved with Sequelae]
  - Chest pain [Unknown]
